FAERS Safety Report 20936572 (Version 2)
Quarter: 2022Q4

REPORT INFORMATION
  Report Type: Report from Study
  Country: US (occurrence: US)
  Receive Date: 20220609
  Receipt Date: 20221026
  Transmission Date: 20230112
  Serious: No
  Sender: FDA-Public Use
  Company Number: US-KYOWAKIRIN-2022BKK008632

PATIENT

DRUGS (2)
  1. CRYSVITA [Suspect]
     Active Substance: BUROSUMAB-TWZA
     Indication: Osteomalacia
     Dosage: 40 MG/ML, 1X/4 WEEKS
     Route: 065
     Dates: start: 20201012
  2. CRYSVITA [Suspect]
     Active Substance: BUROSUMAB-TWZA
     Dosage: 90 MG/ML, 1X/4 WEEKS
     Route: 065
     Dates: start: 20201012

REACTIONS (2)
  - Paraesthesia [Unknown]
  - Urticaria [Unknown]
